FAERS Safety Report 21846253 (Version 2)
Quarter: 2023Q1

REPORT INFORMATION
  Report Type: Report from Study
  Country: EG (occurrence: EG)
  Receive Date: 20230111
  Receipt Date: 20230228
  Transmission Date: 20230417
  Serious: Yes (Other)
  Sender: FDA-Public Use
  Company Number: EG-002147023-NVSC2023EG003536

PATIENT
  Age: 37 Year
  Sex: Female

DRUGS (3)
  1. MAYZENT [Suspect]
     Active Substance: SIPONIMOD
     Indication: Multiple sclerosis
     Dosage: 0.25 MG, QID
     Route: 048
     Dates: start: 202209, end: 20221229
  2. MAYZENT [Suspect]
     Active Substance: SIPONIMOD
     Dosage: 2 MG, QD
     Route: 048
     Dates: start: 20230101
  3. MAYZENT [Suspect]
     Active Substance: SIPONIMOD
     Dosage: 0.25 MG, QID
     Route: 065

REACTIONS (7)
  - Movement disorder [Recovered/Resolved]
  - Mobility decreased [Recovered/Resolved]
  - Pain in extremity [Recovered/Resolved]
  - Movement disorder [Recovered/Resolved]
  - Mobility decreased [Recovered/Resolved]
  - Pain in extremity [Recovered/Resolved]
  - Product availability issue [Recovered/Resolved]

NARRATIVE: CASE EVENT DATE: 20221223
